FAERS Safety Report 8553254-4 (Version None)
Quarter: 2012Q3

REPORT INFORMATION
  Report Type: 
  Country: None (occurrence: None)
  Receive Date: 20120731
  Receipt Date: 20120719
  Transmission Date: 20120928
  Serious: Yes (Other)
  Sender: FDA-Public Use
  Company Number: BR-AMGEN-BRASP2012046423

PATIENT
  Age: 42 Year
  Sex: Male
  Weight: 110 kg

DRUGS (3)
  1. ENBREL [Suspect]
     Indication: PSORIATIC ARTHROPATHY
     Dosage: 50 MG, ONCE WEEKLY
     Route: 058
     Dates: start: 20120101
  2. TORLOS [Concomitant]
     Indication: PSORIATIC ARTHROPATHY
     Dosage: UNK
  3. METHOTREXATE [Concomitant]
     Dosage: UNK
     Dates: end: 20120601

REACTIONS (4)
  - PSORIATIC ARTHROPATHY [None]
  - APPLICATION SITE PAIN [None]
  - SKIN LESION [None]
  - DRUG INEFFECTIVE [None]
